FAERS Safety Report 9335286 (Version 1)
Quarter: 2013Q2

REPORT INFORMATION
  Report Type: Spontaneous
  Country: KR (occurrence: KR)
  Receive Date: 20130606
  Receipt Date: 20130606
  Transmission Date: 20140414
  Serious: Yes (Hospitalization)
  Sender: FDA-Public Use
  Company Number: KR-JNJFOC-20130518964

PATIENT
  Age: 1 Month
  Sex: Male

DRUGS (1)
  1. CHILDREN^S TYLENOL [Suspect]
     Indication: PYREXIA
     Route: 048
     Dates: start: 20130128, end: 20130128

REACTIONS (3)
  - Hepatic enzyme increased [Not Recovered/Not Resolved]
  - Drug effect decreased [Unknown]
  - Product quality issue [Unknown]
